FAERS Safety Report 15868485 (Version 1)
Quarter: 2019Q1

REPORT INFORMATION
  Report Type: Spontaneous
  Country: US (occurrence: US)
  Receive Date: 20190125
  Receipt Date: 20190125
  Transmission Date: 20190417
  Serious: No
  Sender: FDA-Public Use
  Company Number: None

PATIENT
  Sex: Female

DRUGS (4)
  1. ENBREL [Suspect]
     Active Substance: ETANERCEPT
  2. PRAVASTATIN. [Concomitant]
     Active Substance: PRAVASTATIN
  3. SULFASALAZINE. [Concomitant]
     Active Substance: SULFASALAZINE
  4. HYDROXICHLOROQUINE [Concomitant]
     Indication: RHEUMATOID ARTHRITIS
     Route: 058
     Dates: start: 201501

REACTIONS (2)
  - Diarrhoea [None]
  - Groin infection [None]
